FAERS Safety Report 8314866-6 (Version None)
Quarter: 2012Q2

REPORT INFORMATION
  Report Type: 
  Country: None (occurrence: None)
  Receive Date: 20120426
  Receipt Date: 20120213
  Transmission Date: 20120825
  Serious: No
  Sender: FDA-Public Use
  Company Number: US-MYLANLABS-2012S1003392

PATIENT
  Age: 11 Year
  Sex: Male

DRUGS (1)
  1. CLONIDINE [Suspect]
     Indication: ABNORMAL BEHAVIOUR
     Dosage: CHANGED Q72
     Route: 062

REACTIONS (2)
  - DRUG INEFFECTIVE FOR UNAPPROVED INDICATION [None]
  - ABNORMAL BEHAVIOUR [None]
